FAERS Safety Report 24274102 (Version 9)
Quarter: 2024Q4

REPORT INFORMATION
  Report Type: Spontaneous
  Country: US (occurrence: US)
  Receive Date: 20240902
  Receipt Date: 20241004
  Transmission Date: 20250114
  Serious: Yes (Disabling)
  Sender: ROCHE
  Company Number: US-ROCHE-10000067818

PATIENT
  Age: 61 Year
  Sex: Female
  Weight: 86.18 kg

DRUGS (30)
  1. ACTEMRA [Suspect]
     Active Substance: TOCILIZUMAB
     Indication: Pain
     Dosage: 162 MG/0.9 ML
     Route: 058
  2. ACTEMRA [Suspect]
     Active Substance: TOCILIZUMAB
     Indication: Inflammation
  3. TYLENOL [Concomitant]
     Active Substance: ACETAMINOPHEN
  4. ALPHA LIPOIC ACID [Concomitant]
     Active Substance: .ALPHA.-LIPOIC ACID
  5. BIOFREEZE [Concomitant]
     Active Substance: MENTHOL
  6. CALCIUM CARBONATE [Concomitant]
     Active Substance: CALCIUM CARBONATE
  7. VITAMIN D3 [Concomitant]
     Active Substance: CHOLECALCIFEROL
  8. CAPLYTA [Concomitant]
     Active Substance: LUMATEPERONE
  9. CAPLYTA [Concomitant]
     Active Substance: LUMATEPERONE
  10. CLONAZEPAM [Concomitant]
     Active Substance: CLONAZEPAM
  11. DICLOFENAC [Concomitant]
     Active Substance: DICLOFENAC
  12. DOCUSATE [Concomitant]
     Active Substance: DOCUSATE
  13. IPRATROPIUM [Concomitant]
     Active Substance: IPRATROPIUM
  14. LEVOTHYROXINE [Concomitant]
     Active Substance: LEVOTHYROXINE
  15. LINZESS [Concomitant]
     Active Substance: LINACLOTIDE
  16. LORATADINE [Concomitant]
     Active Substance: LORATADINE
  17. MECLIZINE [Concomitant]
     Active Substance: MECLIZINE HYDROCHLORIDE
  18. METHYLPREDNISOLONE [Concomitant]
     Active Substance: METHYLPREDNISOLONE
  19. MONTELUKAST [Concomitant]
     Active Substance: MONTELUKAST
  20. MYRBETRIQ [Concomitant]
     Active Substance: MIRABEGRON
  21. NURTEC ODT [Concomitant]
     Active Substance: RIMEGEPANT SULFATE
  22. PEPCID [Concomitant]
     Active Substance: FAMOTIDINE
  23. PRAZOSIN [Concomitant]
     Active Substance: PRAZOSIN\PRAZOSIN HYDROCHLORIDE
  24. PROBIOTICS NOS [Concomitant]
     Active Substance: PROBIOTICS NOS
  25. ROPINIROLE [Concomitant]
     Active Substance: ROPINIROLE
  26. TRAMADOL [Concomitant]
     Active Substance: TRAMADOL
  27. TRAZODONE [Concomitant]
     Active Substance: TRAZODONE HYDROCHLORIDE
  28. TRELEGY ELLIPTA [Concomitant]
     Active Substance: FLUTICASONE FUROATE\UMECLIDINIUM BROMIDE\VILANTEROL TRIFENATATE
  29. VENTOLIN HFA [Concomitant]
     Active Substance: ALBUTEROL SULFATE
  30. VITAMIN B12 [Concomitant]
     Active Substance: CYANOCOBALAMIN

REACTIONS (11)
  - Drug delivery system malfunction [Unknown]
  - Device defective [Unknown]
  - Visual impairment [Not Recovered/Not Resolved]
  - Fall [Unknown]
  - Pain [Unknown]
  - Asthenia [Unknown]
  - Product dose omission issue [Unknown]
  - Off label use [Unknown]
  - Decreased appetite [Unknown]
  - Blindness [Unknown]
  - Device issue [Unknown]

NARRATIVE: CASE EVENT DATE: 20231201
